FAERS Safety Report 13993849 (Version 1)
Quarter: 2017Q3

REPORT INFORMATION
  Report Type: Spontaneous
  Country: US (occurrence: US)
  Receive Date: 20170920
  Receipt Date: 20170920
  Transmission Date: 20171128
  Serious: Yes (Hospitalization, Other)
  Sender: FDA-Public Use
  Company Number: US-PFIZER INC-2017403800

PATIENT
  Sex: Female
  Weight: 99.34 kg

DRUGS (10)
  1. PIOGLITAZONE. [Concomitant]
     Active Substance: PIOGLITAZONE
     Indication: BLOOD GLUCOSE ABNORMAL
     Dosage: 30MG TABLET, TAKE 1 DAILY
     Route: 048
  2. ATORVASTATIN CALCIUM. [Concomitant]
     Active Substance: ATORVASTATIN CALCIUM
     Dosage: 20 MG, DAILY
     Route: 048
  3. FENTANYL TRANSDERMAL SYSTEM [Concomitant]
     Active Substance: FENTANYL
     Indication: PAIN
     Dosage: 75 UG, EVERY 72 HOURS
     Dates: start: 2000
  4. METOPROLOL SUCCINATE ER [Concomitant]
     Active Substance: METOPROLOL SUCCINATE
     Indication: BLOOD PRESSURE ABNORMAL
     Dosage: 12.5 MG, DAILY
  5. BUPROPION HYDROCHLORIDE XL [Concomitant]
     Active Substance: BUPROPION HYDROCHLORIDE
     Indication: DEPRESSION
     Dosage: 150 MG, 1X/DAY
     Route: 048
  6. LYRICA [Suspect]
     Active Substance: PREGABALIN
     Indication: DYSKINESIA
     Dosage: 50 MG, 3X/DAY
     Route: 048
  7. SERTRALINE [Concomitant]
     Active Substance: SERTRALINE HYDROCHLORIDE
     Indication: DEPRESSION
     Dosage: 50 MG, 2X/DAY
  8. SERTRALINE [Concomitant]
     Active Substance: SERTRALINE HYDROCHLORIDE
     Indication: ANXIETY
  9. LOSARTAN POTASSIUM. [Concomitant]
     Active Substance: LOSARTAN POTASSIUM
     Dosage: 25MG TABLET, TAKE 1/2 A TABLET A DAY
     Route: 048
  10. AGGRENOX [Concomitant]
     Active Substance: ASPIRIN\DIPYRIDAMOLE
     Indication: MYOCARDIAL INFARCTION
     Dosage: 200 MG, 2X/DAY
     Route: 048

REACTIONS (7)
  - Weight decreased [Unknown]
  - Product use in unapproved indication [Unknown]
  - Blood potassium increased [Unknown]
  - Depression [Unknown]
  - Cardiac disorder [Unknown]
  - Condition aggravated [Unknown]
  - Bladder disorder [Unknown]

NARRATIVE: CASE EVENT DATE: 2015
